FAERS Safety Report 14177589 (Version 1)
Quarter: 2017Q4

REPORT INFORMATION
  Report Type: Spontaneous
  Country: US (occurrence: US)
  Receive Date: 20171110
  Receipt Date: 20171110
  Transmission Date: 20180321
  Serious: Yes (Other)
  Sender: FDA-Public Use
  Company Number: US-BAYER-2017-212055

PATIENT
  Age: 52 Year
  Sex: Male

DRUGS (9)
  1. BACTRIM [Suspect]
     Active Substance: SULFAMETHOXAZOLE\TRIMETHOPRIM
     Indication: NOCARDIOSIS
  2. CARVEDILOL. [Concomitant]
     Active Substance: CARVEDILOL
     Indication: SYSTOLIC DYSFUNCTION
     Dosage: 6.25 MG, BID
  3. VFEND [Suspect]
     Active Substance: VORICONAZOLE
     Dosage: UNK
  4. OMEPRAZOLE. [Concomitant]
     Active Substance: OMEPRAZOLE
     Indication: GASTROOESOPHAGEAL REFLUX DISEASE
     Dosage: 40 MG, QD
     Dates: start: 201704
  5. BACTRIM [Suspect]
     Active Substance: SULFAMETHOXAZOLE\TRIMETHOPRIM
     Indication: COCCIDIOIDOMYCOSIS
     Dosage: 200 MG, BID
     Route: 048
     Dates: start: 201703, end: 201704
  6. VFEND [Suspect]
     Active Substance: VORICONAZOLE
     Dosage: 200 MG, BID
     Route: 048
     Dates: start: 20170503, end: 20170526
  7. CARAFATE [Concomitant]
     Active Substance: SUCRALFATE
     Dosage: 1 G, 4IW
     Dates: start: 201704
  8. MOXIFLOXACIN ORAL [Suspect]
     Active Substance: MOXIFLOXACIN
     Indication: NOCARDIOSIS
     Dosage: 400 MG, QD
     Route: 048
     Dates: start: 20170503, end: 20170526
  9. CARVEDILOL. [Concomitant]
     Active Substance: CARVEDILOL
     Indication: DIASTOLIC DYSFUNCTION

REACTIONS (2)
  - Blister [Not Recovered/Not Resolved]
  - Pseudoporphyria [None]

NARRATIVE: CASE EVENT DATE: 20170531
